FAERS Safety Report 8006892-1 (Version None)
Quarter: 2011Q4

REPORT INFORMATION
  Report Type: 
  Country: None (occurrence: None)
  Receive Date: 20111227
  Receipt Date: 20111216
  Transmission Date: 20120403
  Serious: Yes (Other)
  Sender: FDA-Public Use
  Company Number: FR-JNJFOC-20111201665

PATIENT
  Sex: Male
  Weight: 43 kg

DRUGS (3)
  1. AZATHIOPRINE [Concomitant]
     Indication: CROHN'S DISEASE
  2. INFLIXIMAB, RECOMBINANT [Suspect]
     Route: 042
     Dates: start: 20110101
  3. INFLIXIMAB, RECOMBINANT [Suspect]
     Indication: CROHN'S DISEASE
     Dosage: INTERVAL OF DOSING WAS SHORTENED FROM EVERY 6 WKS TO EVERY 4 WKS TO EXPLAIN THE ^ DOSE INCREASE^
     Route: 042
     Dates: start: 20100301

REACTIONS (1)
  - CROHN'S DISEASE [None]
